FAERS Safety Report 8185955-4 (Version None)
Quarter: 2012Q1

REPORT INFORMATION
  Report Type: 
  Country: None (occurrence: None)
  Receive Date: 20120305
  Receipt Date: 20120225
  Transmission Date: 20120608
  Serious: Yes (Hospitalization, Other)
  Sender: FDA-Public Use
  Company Number: US-ASTRAZENECA-2012SE10352

PATIENT
  Age: 56 Year
  Sex: Female

DRUGS (14)
  1. NUVIGIL [Concomitant]
     Indication: SOMNOLENCE
  2. NUVIGIL [Concomitant]
     Indication: NARCOLEPSY
  3. VENLAFAXINE HCL EXTENDED-RELEASE [Concomitant]
     Indication: ANTIDEPRESSANT THERAPY
     Dosage: TWO CAPSULES IN MORNING AND ONE CAPSULE IN EVENING
  4. LORAZEPAM [Concomitant]
     Indication: ANXIETY
  5. NAPROXEN [Concomitant]
     Indication: ARTHRITIS
  6. PRAMIPEXOLE DIHYCHLLORIDE [Concomitant]
     Indication: RESTLESS LEGS SYNDROME
  7. VITAMIN B-12 [Concomitant]
  8. LITHIUM CARBONATE ER [Concomitant]
     Indication: BIPOLAR DISORDER
  9. SEROQUEL XR [Suspect]
     Indication: BORDERLINE PERSONALITY DISORDER
     Dosage: TWO TABLETS EVERY DAY AT SEVEN P.M.
     Route: 048
  10. BUSPIRONE HCL [Concomitant]
     Indication: ANTIDEPRESSANT THERAPY
  11. SEROQUEL XR [Suspect]
     Indication: MOOD SWINGS
     Dosage: TWO TABLETS EVERY DAY AT SEVEN P.M.
     Route: 048
  12. LEVITHYROXIN [Concomitant]
     Indication: HYPOTHYROIDISM
  13. TOPIRAMATE [Concomitant]
     Indication: BIPOLAR DISORDER
  14. ZOLPIDEM [Concomitant]
     Dosage: 1 TABLET BEDTIME AS NEEDED

REACTIONS (18)
  - FOREARM FRACTURE [None]
  - FIBULA FRACTURE [None]
  - TIBIA FRACTURE [None]
  - ROAD TRAFFIC ACCIDENT [None]
  - ANXIETY [None]
  - FIBROMYALGIA [None]
  - LIGAMENT SPRAIN [None]
  - HAEMATOMA [None]
  - EXCORIATION [None]
  - PERNICIOUS ANAEMIA [None]
  - HEAD INJURY [None]
  - URGE INCONTINENCE [None]
  - OFF LABEL USE [None]
  - ANKLE FRACTURE [None]
  - AGORAPHOBIA [None]
  - CARPAL TUNNEL SYNDROME [None]
  - DEPRESSION [None]
  - CYSTITIS INTERSTITIAL [None]
